FAERS Safety Report 10023029 (Version 3)
Quarter: 2014Q2

REPORT INFORMATION
  Report Type: Report from Study
  Country: US (occurrence: US)
  Receive Date: 20140319
  Receipt Date: 20140428
  Transmission Date: 20141212
  Serious: Yes (Other)
  Sender: FDA-Public Use
  Company Number: US-GILEAD-2014-0097081

PATIENT
  Age: 66 Year
  Sex: Male

DRUGS (3)
  1. RANOLAZINE [Suspect]
     Indication: ANGINA PECTORIS
     Dosage: 500 MG, UNK
     Route: 065
  2. RANOLAZINE [Suspect]
     Indication: DIASTOLIC DYSFUNCTION
  3. RANOLAZINE [Suspect]
     Indication: ANGINA PECTORIS

REACTIONS (2)
  - Myocardial infarction [Unknown]
  - Cardiac operation [Unknown]
